FAERS Safety Report 22595512 (Version 2)
Quarter: 2023Q2

REPORT INFORMATION
  Report Type: Report from Study
  Country: CA (occurrence: CA)
  Receive Date: 20230613
  Receipt Date: 20230613
  Transmission Date: 20230721
  Serious: Yes (Other)
  Sender: FDA-Public Use
  Company Number: CA-HLS-202300646

PATIENT
  Age: 44 Year
  Sex: Male

DRUGS (1)
  1. CLOZARIL [Suspect]
     Active Substance: CLOZAPINE
     Indication: Product used for unknown indication
     Dosage: UNKNOWN
     Route: 048
     Dates: start: 20190514

REACTIONS (8)
  - C-reactive protein increased [Unknown]
  - Eosinophilia [Not Recovered/Not Resolved]
  - Hypertension [Unknown]
  - Schizophrenia [Not Recovered/Not Resolved]
  - Glucose tolerance impaired [Unknown]
  - Hepatic steatosis [Unknown]
  - Sinus tachycardia [Not Recovered/Not Resolved]
  - Myocarditis [Unknown]

NARRATIVE: CASE EVENT DATE: 20220701
